FAERS Safety Report 20784335 (Version 1)
Quarter: 2022Q2

REPORT INFORMATION
  Report Type: Spontaneous
  Country: US (occurrence: US)
  Receive Date: 20220504
  Receipt Date: 20220504
  Transmission Date: 20220721
  Serious: No
  Sender: FDA-Public Use
  Company Number: US-PFIZER INC-202101061990

PATIENT
  Age: 64 Year
  Sex: Female
  Weight: 84.01 kg

DRUGS (2)
  1. MEDROL [Suspect]
     Active Substance: METHYLPREDNISOLONE
     Dosage: UNK
  2. TRIAMCINOLONE [Suspect]
     Active Substance: TRIAMCINOLONE
     Dosage: TO AFFECTED AREA THREE TIMES DAILY FOR 10 DAYS
     Route: 061

REACTIONS (1)
  - Therapeutic product effect incomplete [Unknown]
